FAERS Safety Report 4556042-9 (Version None)
Quarter: 2005Q1

REPORT INFORMATION
  Report Type: 
  Country: None (occurrence: None)
  Receive Date: 20050119
  Receipt Date: 20040608
  Transmission Date: 20050727
  Serious: Yes (Hospitalization)
  Sender: FDA-Public Use
  Company Number: FR-GLAXOSMITHKLINE-B0335307A

PATIENT
  Age: 82 Year
  Sex: Female

DRUGS (6)
  1. AZANTAC [Suspect]
     Indication: GASTROINTESTINAL ULCER
     Dosage: 300MG PER DAY
     Route: 048
     Dates: start: 20040521, end: 20040530
  2. COVERSYL [Suspect]
     Indication: HYPERTENSION
     Dosage: 4MG PER DAY
     Route: 048
     Dates: start: 20040522, end: 20040531
  3. AROMASIN [Suspect]
     Indication: BREAST CANCER
     Dosage: 25MG PER DAY
     Route: 048
     Dates: end: 20040527
  4. CORDARONE [Concomitant]
     Indication: ATRIAL FIBRILLATION
     Dosage: 1TAB PER DAY
     Route: 048
     Dates: start: 20040522
  5. PREVISCAN [Concomitant]
     Indication: ATRIAL FIBRILLATION
     Dosage: 10MG PER DAY
     Route: 048
  6. RADIOTHERAPY [Concomitant]
     Indication: BREAST CANCER

REACTIONS (3)
  - LEUKOPENIA [None]
  - NEUTROPENIA [None]
  - RESPIRATORY FAILURE [None]
